FAERS Safety Report 17676487 (Version 2)
Quarter: 2020Q2

REPORT INFORMATION
  Report Type: Spontaneous
  Country: US (occurrence: US)
  Receive Date: 20200416
  Receipt Date: 20200522
  Transmission Date: 20200714
  Serious: No
  Sender: FDA-Public Use
  Company Number: US-GRANULES INDIA LIMITED-2082921

PATIENT
  Sex: Female

DRUGS (2)
  1. METHOCARBAMOL. [Suspect]
     Active Substance: METHOCARBAMOL
     Indication: BACK PAIN
     Route: 048
  2. HYDROCODONE BITARTRATE AND ACETAMINOPHEN [Concomitant]
     Active Substance: ACETAMINOPHEN\HYDROCODONE BITARTRATE
     Route: 065

REACTIONS (15)
  - Nausea [Unknown]
  - Therapeutic product effect variable [Unknown]
  - Condition aggravated [Unknown]
  - Hypoaesthesia oral [Recovered/Resolved]
  - Gait disturbance [Unknown]
  - Hyperhidrosis [Unknown]
  - Dizziness [Unknown]
  - Feeling abnormal [Recovered/Resolved]
  - Product substitution issue [Unknown]
  - Insomnia [Unknown]
  - Pain [Unknown]
  - Product measured potency issue [Unknown]
  - Poor quality sleep [Unknown]
  - Paraesthesia oral [Recovered/Resolved]
  - Adverse reaction [Unknown]

NARRATIVE: CASE EVENT DATE: 20200212
